FAERS Safety Report 10983663 (Version 1)
Quarter: 2015Q2

REPORT INFORMATION
  Report Type: Spontaneous
  Country: US (occurrence: None)
  Receive Date: 20150402
  Receipt Date: 20150402
  Transmission Date: 20150821
  Serious: Yes (Other)
  Sender: FDA-Public Use
  Company Number: None

PATIENT
  Age: 23 Year
  Sex: Female
  Weight: 95.26 kg

DRUGS (2)
  1. ZUBSOLV [Suspect]
     Active Substance: BUPRENORPHINE HYDROCHLORIDE\NALOXONE HYDROCHLORIDE
     Indication: DRUG DEPENDENCE
     Dosage: 1 PILL ONCE DAILY TAKEN UNDER THE TONGUE
     Dates: start: 20150323, end: 20150401
  2. ADVAIR HFA [Concomitant]
     Active Substance: FLUTICASONE PROPIONATE\SALMETEROL XINAFOATE

REACTIONS (7)
  - Product substitution issue [None]
  - Withdrawal syndrome [None]
  - Pain [None]
  - Headache [None]
  - Drug dependence [None]
  - Hyperhidrosis [None]
  - Drug ineffective [None]

NARRATIVE: CASE EVENT DATE: 20150323
